FAERS Safety Report 7290125-8 (Version None)
Quarter: 2011Q1

REPORT INFORMATION
  Report Type: 
  Country: None (occurrence: None)
  Receive Date: 20110214
  Receipt Date: 20110208
  Transmission Date: 20110831
  Serious: Yes (Hospitalization)
  Sender: FDA-Public Use
  Company Number: DE-BRISTOL-MYERS SQUIBB COMPANY-15536253

PATIENT
  Age: 26 Year
  Sex: Female
  Weight: 64 kg

DRUGS (9)
  1. TAXOL [Suspect]
     Indication: BREAST CANCER
     Route: 042
     Dates: start: 20071227, end: 20080225
  2. AMPHOTERICIN B [Concomitant]
     Route: 048
     Dates: start: 20071108
  3. CYCLOPHOSPHAMIDE [Suspect]
     Indication: BREAST CANCER
     Route: 042
     Dates: start: 20071029, end: 20071226
  4. CIPROHEXAL [Concomitant]
     Route: 048
     Dates: start: 20071102
  5. PEGFILGRASTIM [Concomitant]
     Route: 058
     Dates: start: 20071030, end: 20071211
  6. XELODA [Suspect]
     Indication: BREAST CANCER
     Route: 048
     Dates: start: 20071227, end: 20080303
  7. FERRO SANOL [Concomitant]
     Route: 048
     Dates: start: 20071029, end: 20080311
  8. NEORECORMON [Concomitant]
     Dosage: 1DF=30.0001 UNIT NOT SPECIFIED
     Route: 058
     Dates: start: 20071029, end: 20080225
  9. EPIRUBICIN [Suspect]
     Indication: BREAST CANCER
     Dosage: FREQUENCY II
     Route: 042
     Dates: start: 20070129, end: 20071226

REACTIONS (1)
  - VENOUS THROMBOSIS LIMB [None]
